FAERS Safety Report 16820031 (Version 1)
Quarter: 2019Q3

REPORT INFORMATION
  Report Type: Spontaneous
  Country: DK (occurrence: DK)
  Receive Date: 20190918
  Receipt Date: 20190918
  Transmission Date: 20191005
  Serious: Yes (Other)
  Sender: FDA-Public Use
  Company Number: DK-009507513-1909DNK005816

PATIENT
  Age: 71 Year
  Sex: Female

DRUGS (2)
  1. ALENDRONATE SODIUM. [Suspect]
     Active Substance: ALENDRONATE SODIUM
     Indication: OSTEOPOROSIS
     Dosage: 70 MILLIGRAM, QW; (STRENGTH: 70 MG)
     Route: 048
     Dates: start: 20150520
  2. METHOTREXATE. [Concomitant]
     Active Substance: METHOTREXATE
     Indication: ARTHRITIS
     Dosage: 10 MILLIGRAM, QW; (STRENGTH: 2.5 MG)
     Route: 048

REACTIONS (3)
  - Jaw operation [Unknown]
  - Osteonecrosis of jaw [Unknown]
  - Impaired healing [Unknown]

NARRATIVE: CASE EVENT DATE: 201812
